FAERS Safety Report 19447671 (Version 1)
Quarter: 2021Q2

REPORT INFORMATION
  Report Type: Spontaneous
  Country: US (occurrence: US)
  Receive Date: 20210622
  Receipt Date: 20210622
  Transmission Date: 20210717
  Serious: No
  Sender: FDA-Public Use
  Company Number: US-THERAPEUTICSMD-2021TMD01603

PATIENT
  Age: 55 Year
  Sex: Female
  Weight: 64.4 kg

DRUGS (22)
  1. MELOXICAM. [Concomitant]
     Active Substance: MELOXICAM
  2. LYSINE [Concomitant]
     Active Substance: LYSINE
  3. ANTIOXIDANT [Concomitant]
     Active Substance: UNSPECIFIED INGREDIENT
  4. GINKGO BILOBA [Concomitant]
     Active Substance: GINKGO
  5. IMVEXXY [Suspect]
     Active Substance: ESTRADIOL
     Dosage: 4 ?G, 1X/WEEK
     Route: 067
     Dates: end: 202104
  6. BCAA [Concomitant]
  7. VALTREX [Concomitant]
     Active Substance: VALACYCLOVIR HYDROCHLORIDE
  8. PROGESTERONE. [Concomitant]
     Active Substance: PROGESTERONE
  9. IMVEXXY [Suspect]
     Active Substance: ESTRADIOL
     Indication: VULVOVAGINAL DRYNESS
     Dosage: 4 ?G, 2X/WEEK
     Route: 067
  10. VIELLE DOT [Concomitant]
  11. ZYRTEC [Concomitant]
     Active Substance: CETIRIZINE HYDROCHLORIDE
  12. MULTIVITAMIN [Concomitant]
     Active Substance: VITAMINS
  13. FISH OIL [Concomitant]
     Active Substance: FISH OIL
  14. CALCIUM [Concomitant]
     Active Substance: CALCIUM
  15. PROBIOTIC [Concomitant]
     Active Substance: PROBIOTICS NOS
  16. CLEAR MOOD [Concomitant]
  17. COLLAGEN [Concomitant]
     Active Substance: COLLAGEN
  18. REPLENS [Suspect]
     Active Substance: CARBOMER 934\GLYCERIN\METHYLPARABEN\PROPYLPARABEN\SODIUM HYDROXIDE
     Dosage: UNK
     Dates: start: 202011
  19. VITAMIN D [Concomitant]
     Active Substance: VITAMIN D NOS
  20. FORMULA W [Concomitant]
  21. ALFA HYDROXY [Concomitant]
  22. SPARK SUPPLEMENT [Concomitant]

REACTIONS (6)
  - Uterine leiomyoma [Not Recovered/Not Resolved]
  - Vaginal discharge [Not Recovered/Not Resolved]
  - Malabsorption from administration site [Recovered/Resolved]
  - Off label use [Recovered/Resolved]
  - Breast tenderness [Recovered/Resolved]
  - Discomfort [Recovered/Resolved]

NARRATIVE: CASE EVENT DATE: 202009
